FAERS Safety Report 7012258-3 (Version None)
Quarter: 2010Q3

REPORT INFORMATION
  Report Type: 
  Country: None (occurrence: None)
  Receive Date: 20100910
  Receipt Date: 20090923
  Transmission Date: 20110219
  Serious: Yes (Hospitalization)
  Sender: FDA-Public Use
  Company Number: 1000009078

PATIENT
  Age: 19 Year
  Sex: Female

DRUGS (4)
  1. CELEXA [Suspect]
     Indication: DEPRESSION
     Dosage: 20 MG (20 MG, 1 IN1 D),ORAL; 400 MG, 20 TABLETS), ORAL; 20 MG (20 MG, 1 IN 1 D),ORAL
     Route: 048
     Dates: start: 20090911, end: 20090919
  2. CELEXA [Suspect]
     Indication: DEPRESSION
     Dosage: 20 MG (20 MG, 1 IN1 D),ORAL; 400 MG, 20 TABLETS), ORAL; 20 MG (20 MG, 1 IN 1 D),ORAL
     Route: 048
     Dates: start: 20090920, end: 20090920
  3. CELEXA [Suspect]
     Indication: DEPRESSION
     Dosage: 20 MG (20 MG, 1 IN1 D),ORAL; 400 MG, 20 TABLETS), ORAL; 20 MG (20 MG, 1 IN 1 D),ORAL
     Route: 048
     Dates: start: 20090901
  4. ALCOHOL [Concomitant]

REACTIONS (3)
  - INSOMNIA [None]
  - INTENTIONAL OVERDOSE [None]
  - SUICIDE ATTEMPT [None]
